FAERS Safety Report 5315982-3 (Version None)
Quarter: 2007Q2

REPORT INFORMATION
  Report Type: 
  Country: None (occurrence: None)
  Receive Date: 20070503
  Receipt Date: 20070420
  Transmission Date: 20071010
  Serious: Yes (Other)
  Sender: FDA-Public Use
  Company Number: JP-ROCHE-489784

PATIENT
  Age: 10 Year
  Sex: Female
  Weight: 34 kg

DRUGS (5)
  1. TAMIFLU [Suspect]
     Dosage: FORM: DRY SYRUP.
     Route: 048
     Dates: start: 20070305, end: 20070308
  2. ASVERIN [Concomitant]
     Route: 048
     Dates: start: 20070305, end: 20070309
  3. PERIACTIN [Concomitant]
     Route: 048
     Dates: start: 20070305, end: 20070309
  4. MUCODYNE [Concomitant]
     Route: 048
     Dates: start: 20070305, end: 20070309
  5. IBUPROFEN [Concomitant]
     Dosage: TRADE NAME REPORTED AS UNIPRON.
     Route: 054
     Dates: start: 20070305, end: 20070306

REACTIONS (4)
  - ABNORMAL BEHAVIOUR [None]
  - CRYING [None]
  - SCREAMING [None]
  - SUICIDAL IDEATION [None]
